FAERS Safety Report 23661615 (Version 1)
Quarter: 2024Q1

REPORT INFORMATION
  Report Type: Other
  Country: US (occurrence: None)
  Receive Date: 20240322
  Receipt Date: 20240322
  Transmission Date: 20240410
  Serious: Yes (Other)
  Sender: FDA-Public Use
  Company Number: US-ROCHE-3527936

PATIENT
  Age: 69 Year
  Sex: Female
  Weight: 63.56 kg

DRUGS (12)
  1. OCREVUS [Suspect]
     Active Substance: OCRELIZUMAB
     Indication: Relapsing multiple sclerosis
     Dosage: 300MG IV FOR 1 DOSE, THEN 2 WEEKS LATER 300G IV FOR 1 DOSE, THEN 6 MO LATER 600MG IV EVERY 6 MONTHS,
     Route: 042
     Dates: start: 201911, end: 202307
  2. SIMVASTATIN [Concomitant]
     Active Substance: SIMVASTATIN
  3. ROPINIROLE [Concomitant]
     Active Substance: ROPINIROLE
  4. NALTREXONE [Concomitant]
     Active Substance: NALTREXONE
  5. MAGNESIUM [Concomitant]
     Active Substance: MAGNESIUM
  6. GABAPENTIN [Concomitant]
     Active Substance: GABAPENTIN
  7. FISH OIL [Concomitant]
     Active Substance: FISH OIL
  8. ESTRADIOL [Concomitant]
     Active Substance: ESTRADIOL
  9. COENZYME Q10 [Concomitant]
     Active Substance: DIETARY SUPPLEMENT\UBIDECARENONE
  10. CHOLESTYRAMINE [Concomitant]
     Active Substance: CHOLESTYRAMINE
  11. CALCIUM [Concomitant]
     Active Substance: CALCIUM
  12. AMLODIPINE [Concomitant]
     Active Substance: AMLODIPINE BESYLATE

REACTIONS (3)
  - Invasive ductal breast carcinoma [Not Recovered/Not Resolved]
  - COVID-19 [Recovered/Resolved]
  - Cellulitis [Recovered/Resolved]

NARRATIVE: CASE EVENT DATE: 20221001
